FAERS Safety Report 4508469-9 (Version None)
Quarter: 2004Q4

REPORT INFORMATION
  Report Type: 
  Country: None (occurrence: None)
  Receive Date: 20041123
  Receipt Date: 20040225
  Transmission Date: 20050328
  Serious: No
  Sender: FDA-Public Use
  Company Number: US-GLAXOSMITHKLINE-A0499862A

PATIENT
  Age: 23 Year
  Sex: Male

DRUGS (1)
  1. WELLBUTRIN SR [Suspect]
     Dosage: 100MG TWICE PER DAY
     Route: 048
     Dates: start: 20030101

REACTIONS (3)
  - DECREASED APPETITE [None]
  - DEPRESSION [None]
  - SLEEP DISORDER [None]
